FAERS Safety Report 18433670 (Version 1)
Quarter: 2020Q4

REPORT INFORMATION
  Report Type: Spontaneous
  Country: US (occurrence: US)
  Receive Date: 20201027
  Receipt Date: 20201027
  Transmission Date: 20210114
  Serious: Yes (Hospitalization)
  Sender: FDA-Public Use
  Company Number: US-FRESENIUS MEDICAL CARE RENAL THERAPIES GROUP-FMC-2010-001257

PATIENT
  Age: 59 Year
  Sex: Male
  Weight: 80.4 kg

DRUGS (26)
  1. COREG [Concomitant]
     Active Substance: CARVEDILOL
  2. GENTAMYCIN [Concomitant]
     Active Substance: GENTAMICIN
  3. CLONIDINE. [Concomitant]
     Active Substance: CLONIDINE
  4. DUONEB [Concomitant]
     Active Substance: ALBUTEROL SULFATE\IPRATROPIUM BROMIDE
  5. HYDROXYCHLOROQUINE [Concomitant]
     Active Substance: HYDROXYCHLOROQUINE
  6. ALBUTEROL. [Concomitant]
     Active Substance: ALBUTEROL
  7. CALCITRIOL. [Concomitant]
     Active Substance: CALCITRIOL
  8. OXYCODONE AND ACETAMINOPHEN [Concomitant]
     Active Substance: ACETAMINOPHEN\OXYCODONE HYDROCHLORIDE
  9. ZOFRAN [Concomitant]
     Active Substance: ONDANSETRON HYDROCHLORIDE
  10. LEVOTHYROXINE. [Concomitant]
     Active Substance: LEVOTHYROXINE
  11. SYMBICORT [Concomitant]
     Active Substance: BUDESONIDE\FORMOTEROL FUMARATE DIHYDRATE
  12. CHOLECALCIFEROL [Concomitant]
     Active Substance: CHOLECALCIFEROL
  13. DELFLEX [Suspect]
     Active Substance: CALCIUM CHLORIDE\DEXTROSE\MAGNESIUM CHLORIDE\SODIUM CHLORIDE\SODIUM LACTATE
     Indication: END STAGE RENAL DISEASE
     Route: 033
  14. TIOTROPIUM [Concomitant]
     Active Substance: TIOTROPIUM
  15. PREDNISONE. [Concomitant]
     Active Substance: PREDNISONE
  16. SENNA [Concomitant]
     Active Substance: SENNA LEAF\SENNOSIDES\SENNOSIDES A AND B
  17. ATORVASTATIN [Concomitant]
     Active Substance: ATORVASTATIN
  18. OMEPRAZOLE. [Concomitant]
     Active Substance: OMEPRAZOLE
  19. TRAZODONE [Concomitant]
     Active Substance: TRAZODONE HYDROCHLORIDE
  20. HYDRALAZINE [Concomitant]
     Active Substance: HYDRALAZINE HYDROCHLORIDE
  21. NICOTINE. [Concomitant]
     Active Substance: NICOTINE
  22. AMLODIPINE [Concomitant]
     Active Substance: AMLODIPINE BESYLATE
  23. FLUTICASONE. [Concomitant]
     Active Substance: FLUTICASONE
  24. MULTIVITAMIN [Concomitant]
     Active Substance: VITAMINS
  25. LASIX [Concomitant]
     Active Substance: FUROSEMIDE
  26. OMEGA [Concomitant]

REACTIONS (4)
  - Peritonitis [Recovering/Resolving]
  - Complication associated with device [Recovering/Resolving]
  - Electrolyte imbalance [Recovering/Resolving]
  - Constipation [Recovering/Resolving]
